FAERS Safety Report 9631151 (Version 4)
Quarter: 2014Q2

REPORT INFORMATION
  Report Type: Spontaneous
  Country: FR (occurrence: FR)
  Receive Date: 20131018
  Receipt Date: 20140623
  Transmission Date: 20141212
  Serious: Yes (Death, Hospitalization, Other)
  Sender: FDA-Public Use
  Company Number: FR-MERCK-2012SP022251

PATIENT
  Age: 59 Year
  Sex: Female
  Weight: 61 kg

DRUGS (5)
  1. VICTRELIS [Suspect]
     Indication: HEPATITIS C
     Dosage: 800 MG, TID
     Route: 048
     Dates: start: 20110517, end: 20120115
  2. VIRAFERONPEG [Suspect]
     Indication: HEPATITIS C
     Dosage: 120 ?G, QW
     Route: 058
     Dates: start: 20110420, end: 20120115
  3. REBETOL [Suspect]
     Indication: HEPATITIS C
     Dosage: 1000 MG, QD
     Route: 048
     Dates: start: 20110420, end: 20120115
  4. NEORECORMON [Concomitant]
     Indication: ANAEMIA
     Dosage: 30000 IU, QW
     Dates: start: 20110713, end: 20120115
  5. ALDACTONE TABLETS [Concomitant]
     Indication: OEDEMA
     Dosage: 50 MG, QD
     Dates: start: 20110712

REACTIONS (4)
  - Gastrointestinal disorder [Fatal]
  - Sepsis [Fatal]
  - Leukopenia [Recovered/Resolved]
  - Anaemia [Recovered/Resolved]
